FAERS Safety Report 5369447-3 (Version None)
Quarter: 2007Q2

REPORT INFORMATION
  Report Type: 
  Country: None (occurrence: None)
  Receive Date: 20070625
  Receipt Date: 20070430
  Transmission Date: 20071010
  Serious: Yes (Other)
  Sender: FDA-Public Use
  Company Number: US-PURDUE-USA_2007_0027657

PATIENT
  Sex: Female
  Weight: 82 kg

DRUGS (2)
  1. OXYCONTIN [Suspect]
     Indication: BACK PAIN
     Dosage: 10 MG, UNK
     Dates: start: 20010626
  2. PREMARIN [Concomitant]
     Dosage: 1 TABLET, DAILY

REACTIONS (16)
  - AMNESIA [None]
  - BACK PAIN [None]
  - CONFUSIONAL STATE [None]
  - DELUSIONAL PERCEPTION [None]
  - DISORIENTATION [None]
  - FEELING JITTERY [None]
  - MALAISE [None]
  - MENTAL IMPAIRMENT [None]
  - MORBID THOUGHTS [None]
  - MUSCLE SPASMS [None]
  - NAUSEA [None]
  - NERVOUSNESS [None]
  - NIGHTMARE [None]
  - PAIN [None]
  - SUICIDAL IDEATION [None]
  - VOMITING [None]
